FAERS Safety Report 12438884 (Version 1)
Quarter: 2016Q2

REPORT INFORMATION
  Report Type: Spontaneous
  Country: US (occurrence: US)
  Receive Date: 20160606
  Receipt Date: 20160606
  Transmission Date: 20160815
  Serious: No
  Sender: FDA-Public Use
  Company Number: US-DSJP-DSU-2015-131574

PATIENT
  Sex: Female

DRUGS (4)
  1. BENICAR [Suspect]
     Active Substance: OLMESARTAN MEDOXOMIL
     Indication: HYPERTENSION
     Dosage: 20 MG, QD
     Route: 048
  2. BENICAR [Suspect]
     Active Substance: OLMESARTAN MEDOXOMIL
     Dosage: 20 MG, QD
     Route: 048
     Dates: start: 2013
  3. BYSTOLIC [Suspect]
     Active Substance: NEBIVOLOL HYDROCHLORIDE
     Indication: HYPERTENSION
     Dosage: UNK
     Dates: end: 2013
  4. QUININE-ODAN [Suspect]
     Active Substance: QUININE SULFATE
     Indication: LIMB DISCOMFORT
     Dosage: 1 TABLET , QD
     Route: 048

REACTIONS (12)
  - Headache [Not Recovered/Not Resolved]
  - Dry skin [Not Recovered/Not Resolved]
  - Disorientation [Recovered/Resolved]
  - Muscle spasms [Not Recovered/Not Resolved]
  - Hypertension [Recovered/Resolved]
  - Dry throat [Not Recovered/Not Resolved]
  - Nail disorder [Not Recovered/Not Resolved]
  - Rash [Not Recovered/Not Resolved]
  - Cataract operation [Recovered/Resolved]
  - Nocturia [Not Recovered/Not Resolved]
  - Acne [Recovering/Resolving]
  - Tinnitus [Not Recovered/Not Resolved]
